FAERS Safety Report 7605548-4 (Version None)
Quarter: 2011Q3

REPORT INFORMATION
  Report Type: 
  Country: None (occurrence: None)
  Receive Date: 20110705
  Receipt Date: 20110617
  Transmission Date: 20111222
  Serious: Yes (Disabling)
  Sender: FDA-Public Use
  Company Number: 2011MA007716

PATIENT
  Age: 44 Year
  Sex: Female

DRUGS (1)
  1. LIDOCAINE [Suspect]
     Indication: ANAESTHESIA
     Dosage: 3 ML;OPH
     Route: 047

REACTIONS (10)
  - VISUAL ACUITY REDUCED [None]
  - PUPILLARY REFLEX IMPAIRED [None]
  - OPTIC DISC DISORDER [None]
  - RETINOPATHY [None]
  - RETINAL HAEMORRHAGE [None]
  - RETINAL VASCULAR DISORDER [None]
  - RETINAL EXUDATES [None]
  - OPTIC ATROPHY [None]
  - RETINAL PIGMENT EPITHELIOPATHY [None]
  - PAPILLOEDEMA [None]
